FAERS Safety Report 12310714 (Version 1)
Quarter: 2016Q2

REPORT INFORMATION
  Report Type: Spontaneous
  Country: GB (occurrence: GB)
  Receive Date: 20160427
  Receipt Date: 20160427
  Transmission Date: 20160815
  Serious: Yes (Life-Threatening, Hospitalization, Congenital Anomaly)
  Sender: FDA-Public Use
  Company Number: PHHY2016GB052940

PATIENT

DRUGS (1)
  1. CEFUROXIME SODIUM. [Suspect]
     Active Substance: CEFUROXIME SODIUM
     Indication: PRODUCT USED FOR UNKNOWN INDICATION
     Route: 064
     Dates: start: 20151113, end: 20151113

REACTIONS (2)
  - Maternal exposure timing unspecified [Recovering/Resolving]
  - Brain hypoxia [Recovering/Resolving]

NARRATIVE: CASE EVENT DATE: 20151113
